FAERS Safety Report 20316882 (Version 2)
Quarter: 2022Q1

REPORT INFORMATION
  Report Type: Spontaneous
  Country: US (occurrence: US)
  Receive Date: 20220110
  Receipt Date: 20220112
  Transmission Date: 20220423
  Serious: No
  Sender: FDA-Public Use
  Company Number: US-JNJFOC-20211265829

PATIENT
  Sex: Male

DRUGS (1)
  1. XARELTO [Suspect]
     Active Substance: RIVAROXABAN
     Indication: Factor V Leiden mutation
     Route: 048

REACTIONS (4)
  - Wound haemorrhage [Unknown]
  - Increased tendency to bruise [Unknown]
  - Off label use [Unknown]
  - Product use in unapproved indication [Unknown]
